FAERS Safety Report 20262541 (Version 1)
Quarter: 2021Q4

REPORT INFORMATION
  Report Type: Spontaneous
  Country: US (occurrence: US)
  Receive Date: 20211231
  Receipt Date: 20211231
  Transmission Date: 20220304
  Serious: No
  Sender: FDA-Public Use
  Company Number: US-CELGENE-USA-20211207885

PATIENT
  Sex: Female
  Weight: 72.640 kg

DRUGS (1)
  1. POMALYST [Suspect]
     Active Substance: POMALIDOMIDE
     Indication: Plasma cell myeloma
     Dosage: 4 MILLIGRAM
     Route: 048
     Dates: start: 201710

REACTIONS (3)
  - Limb injury [Unknown]
  - Increased tendency to bruise [Unknown]
  - Hypoaesthesia [Unknown]
